FAERS Safety Report 17446267 (Version 15)
Quarter: 2022Q2

REPORT INFORMATION
  Report Type: Spontaneous
  Country: US (occurrence: US)
  Receive Date: 20200221
  Receipt Date: 20220614
  Transmission Date: 20220720
  Serious: Yes (Hospitalization, Other)
  Sender: FDA-Public Use
  Company Number: US-VERTEX PHARMACEUTICALS-2020-003155

PATIENT
  Age: 12 Year
  Sex: Female

DRUGS (7)
  1. TRIKAFTA [Suspect]
     Active Substance: ELEXACAFTOR\IVACAFTOR\TEZACAFTOR
     Indication: Cystic fibrosis
     Dosage: 2 TABS AM AND 1 TAB PM
     Route: 048
     Dates: start: 20191226
  2. PULMOZYME [Concomitant]
     Active Substance: DORNASE ALFA
  3. CLARITIN [Concomitant]
     Active Substance: LORATADINE
  4. PREVACID [Concomitant]
     Active Substance: LANSOPRAZOLE
  5. CREON [Concomitant]
     Active Substance: PANCRELIPASE AMYLASE\PANCRELIPASE LIPASE\PANCRELIPASE PROTEASE
  6. SINGULAIR [Concomitant]
     Active Substance: MONTELUKAST SODIUM
  7. ADVAIR HFA [Concomitant]
     Active Substance: FLUTICASONE PROPIONATE\SALMETEROL XINAFOATE

REACTIONS (13)
  - Cough [Recovered/Resolved]
  - Breath odour [Not Recovered/Not Resolved]
  - Brain oedema [Recovered/Resolved]
  - Intracranial pressure increased [Recovered/Resolved]
  - Papilloedema [Recovered/Resolved]
  - Eye pruritus [Recovering/Resolving]
  - Visual impairment [Not Recovered/Not Resolved]
  - Procedural pain [Unknown]
  - Eyelid disorder [Not Recovered/Not Resolved]
  - Anxiety [Not Recovered/Not Resolved]
  - Asthma [Recovered/Resolved]
  - Migraine [Not Recovered/Not Resolved]
  - Headache [Recovering/Resolving]

NARRATIVE: CASE EVENT DATE: 20191201
